FAERS Safety Report 12580711 (Version 1)
Quarter: 2016Q3

REPORT INFORMATION
  Report Type: Spontaneous
  Country: TR (occurrence: TR)
  Receive Date: 20160721
  Receipt Date: 20160721
  Transmission Date: 20161109
  Serious: Yes (Other)
  Sender: FDA-Public Use
  Company Number: TR-WATSON-2016-15631

PATIENT
  Sex: Female

DRUGS (1)
  1. TETRADOX [Suspect]
     Active Substance: DOXYCYCLINE HYDROCHLORIDE
     Indication: ACNE
     Dosage: 100 MG, UNK
     Route: 048

REACTIONS (4)
  - Foreign body [Recovered/Resolved]
  - Removal of foreign body from throat [Unknown]
  - Back pain [Unknown]
  - Sensation of foreign body [Unknown]
